FAERS Safety Report 5158344-4 (Version None)
Quarter: 2006Q4

REPORT INFORMATION
  Report Type: 
  Country: None (occurrence: None)
  Receive Date: 20061116
  Receipt Date: 20061030
  Transmission Date: 20070319
  Serious: Yes (Hospitalization)
  Sender: FDA-Public Use
  Company Number: 6026963

PATIENT
  Age: 94 Year
  Sex: Female

DRUGS (4)
  1. METFORMIN MERCK 850 MG (850 MG, FILM-COATED TABLET) (METFORMIN) [Suspect]
     Indication: DIABETES MELLITUS
     Dosage: 2550 MG (850 MG, 3 IN 1 D) ORAL
     Route: 048
     Dates: end: 20060528
  2. ENALAPRIL MALEATE [Suspect]
     Indication: HYPERTENSION
     Dosage: 5 MG (5 MG, 1 IN 1 D) ORAL
     Route: 048
     Dates: end: 20060528
  3. ALDACTONE (25 MG, FILM-COATED TABLET) (SPIRONOLACTONE) [Concomitant]
  4. GLICLAZIDE ARDIX (80 MG, TABLET) (GLICLAZIDE) [Concomitant]

REACTIONS (2)
  - BLOOD CREATININE INCREASED [None]
  - LACTIC ACIDOSIS [None]
